FAERS Safety Report 24811757 (Version 1)
Quarter: 2025Q1

REPORT INFORMATION
  Report Type: Spontaneous
  Country: US (occurrence: None)
  Receive Date: 20250106
  Receipt Date: 20250106
  Transmission Date: 20250409
  Serious: No
  Sender: FDA-CTU
  Company Number: None

PATIENT
  Age: 44 Year
  Sex: Male

DRUGS (3)
  1. PAXLOVID [Suspect]
     Active Substance: NIRMATRELVIR\RITONAVIR
     Indication: COVID-19
     Dates: start: 20250104, end: 20250105
  2. SYMBICORT [Concomitant]
     Active Substance: BUDESONIDE\FORMOTEROL FUMARATE DIHYDRATE
  3. MOTRIN [Concomitant]
     Active Substance: IBUPROFEN

REACTIONS (4)
  - Rash macular [None]
  - Rash macular [None]
  - Skin burning sensation [None]
  - Dysgeusia [None]

NARRATIVE: CASE EVENT DATE: 20250105
